FAERS Safety Report 4641423-5 (Version None)
Quarter: 2005Q2

REPORT INFORMATION
  Report Type: 
  Country: None (occurrence: None)
  Receive Date: 20050420
  Receipt Date: 20050420
  Transmission Date: 20051028
  Serious: Yes (Other)
  Sender: FDA-Public Use
  Company Number: None

PATIENT
  Age: 29 Year
  Sex: Female
  Weight: 90.7194 kg

DRUGS (3)
  1. LEVAQUIN [Suspect]
     Indication: UPPER RESPIRATORY TRACT INFECTION
     Dosage: 1 TABLET ONCE PER DAY ORAL
     Route: 048
     Dates: start: 20050406, end: 20050411
  2. SEMPREX-D [Suspect]
     Indication: SINUS DISORDER
     Dosage: 1 CAPSULE  TWICE PER DAY ORAL
     Route: 048
     Dates: start: 20050406, end: 20050408
  3. SEMPREX-D [Suspect]
     Indication: UPPER RESPIRATORY TRACT INFECTION
     Dosage: 1 CAPSULE  TWICE PER DAY ORAL
     Route: 048
     Dates: start: 20050406, end: 20050408

REACTIONS (5)
  - DEPRESSION [None]
  - DIZZINESS [None]
  - FEELING ABNORMAL [None]
  - HYPERSOMNIA [None]
  - VISUAL DISTURBANCE [None]
